FAERS Safety Report 6990263-0 (Version None)
Quarter: 2010Q3

REPORT INFORMATION
  Report Type: 
  Country: None (occurrence: None)
  Receive Date: 20100916
  Receipt Date: 20100520
  Transmission Date: 20110219
  Serious: Yes (Other)
  Sender: FDA-Public Use
  Company Number: US-PFIZER INC-2010063778

PATIENT
  Sex: Female
  Weight: 81.633 kg

DRUGS (5)
  1. LYRICA [Suspect]
     Indication: FIBROMYALGIA
     Dosage: 50 MG, 1X/DAY
     Route: 048
     Dates: start: 20100516, end: 20100501
  2. LYRICA [Suspect]
     Indication: NEUROPATHY PERIPHERAL
  3. TENORMIN [Concomitant]
     Indication: HEART RATE IRREGULAR
     Dosage: 25 MG, UNK
     Route: 048
     Dates: start: 20060101
  4. DICLOFENAC [Concomitant]
     Indication: PAIN
     Dosage: 75 MG, 2X/DAY
     Route: 048
  5. ESTRADIOL [Concomitant]
     Dosage: UNK

REACTIONS (6)
  - CONFUSIONAL STATE [None]
  - DISTURBANCE IN ATTENTION [None]
  - EUPHORIC MOOD [None]
  - HEART RATE IRREGULAR [None]
  - RASH [None]
  - SOMNOLENCE [None]
